FAERS Safety Report 4887145-7 (Version None)
Quarter: 2006Q1

REPORT INFORMATION
  Report Type: 
  Country: None (occurrence: None)
  Receive Date: 20060120
  Receipt Date: 20051005
  Transmission Date: 20060701
  Serious: Yes (Hospitalization)
  Sender: FDA-Public Use
  Company Number: US-MERCK-0510USA03958

PATIENT
  Age: 73 Year
  Sex: Female
  Weight: 61 kg

DRUGS (7)
  1. VIOXX [Suspect]
     Indication: ARTHRITIS
     Route: 048
     Dates: start: 20010801, end: 20041001
  2. OS-CAL [Concomitant]
     Route: 065
  3. LIPITOR [Concomitant]
     Route: 065
  4. TOPROL-XL [Concomitant]
     Route: 065
  5. ASPIRIN [Concomitant]
     Route: 065
  6. PROTONIX [Concomitant]
     Route: 065
  7. PROCARDIA [Concomitant]
     Route: 065

REACTIONS (2)
  - AORTIC ANEURYSM [None]
  - CARDIOVASCULAR DISORDER [None]
